FAERS Safety Report 22155288 (Version 1)
Quarter: 2023Q1

REPORT INFORMATION
  Report Type: Spontaneous
  Country: JP (occurrence: JP)
  Receive Date: 20230330
  Receipt Date: 20230330
  Transmission Date: 20230417
  Serious: Yes (Other)
  Sender: FDA-Public Use
  Company Number: JP-MYLANLABS-2023M1030947

PATIENT
  Age: 41 Year
  Sex: Female

DRUGS (3)
  1. EPINEPHRINE [Suspect]
     Active Substance: EPINEPHRINE
     Indication: Anaphylactic reaction
     Dosage: 0.3 MILLILITER
     Route: 058
  2. EPINEPHRINE [Suspect]
     Active Substance: EPINEPHRINE
     Dosage: 0.15 MILLILITER
     Route: 058
     Dates: start: 20220825, end: 20220825
  3. EPINEPHRINE [Suspect]
     Active Substance: EPINEPHRINE
     Dosage: 0.15 MILLILITER
     Route: 058
     Dates: start: 20220825

REACTIONS (2)
  - Blood pressure decreased [Recovering/Resolving]
  - Palpitations [Unknown]

NARRATIVE: CASE EVENT DATE: 20220825
